FAERS Safety Report 7743435-1 (Version None)
Quarter: 2011Q3

REPORT INFORMATION
  Report Type: 
  Country: None (occurrence: None)
  Receive Date: 20110912
  Receipt Date: 20110902
  Transmission Date: 20111222
  Serious: Yes (Life-Threatening, Hospitalization, Other)
  Sender: FDA-Public Use
  Company Number: PHHY2011AR78715

PATIENT
  Sex: Female

DRUGS (1)
  1. DIOVAN [Suspect]
     Dosage: 1 DF, QD

REACTIONS (6)
  - FEELING ABNORMAL [None]
  - PAIN IN EXTREMITY [None]
  - CARDIAC ARREST [None]
  - CHEST PAIN [None]
  - MALAISE [None]
  - ASPHYXIA [None]
